FAERS Safety Report 14310281 (Version 9)
Quarter: 2019Q2

REPORT INFORMATION
  Report Type: Spontaneous
  Country: DE (occurrence: DE)
  Receive Date: 20171220
  Receipt Date: 20190523
  Transmission Date: 20190711
  Serious: Yes (Life-Threatening, Other)
  Sender: FDA-Public Use
  Company Number: DE-MYLANLABS-2017M1079593

PATIENT
  Age: 55 Year
  Sex: Male

DRUGS (8)
  1. TILIDIN [Concomitant]
     Active Substance: NALOXONE HYDROCHLORIDE\TILIDINE HYDROCHLORIDE
     Indication: NASOPHARYNGITIS
     Dosage: UNK
     Route: 065
     Dates: start: 201501
  2. OMEPRAZOLE. [Suspect]
     Active Substance: OMEPRAZOLE
     Indication: NASOPHARYNGITIS
     Dosage: UNK
     Route: 065
     Dates: start: 201501
  3. PANTOPRAZOLE [Suspect]
     Active Substance: PANTOPRAZOLE
     Dosage: UNK
     Route: 048
  4. PANTOPRAZOLE [Suspect]
     Active Substance: PANTOPRAZOLE
     Dosage: UNK
     Route: 048
     Dates: start: 201501
  5. PANTOPRAZOLE [Suspect]
     Active Substance: PANTOPRAZOLE
     Indication: NASOPHARYNGITIS
     Dosage: 0.2 MG, UNK,(ORAL PROVOCATION TEST: 0.2 MG)
     Route: 048
  6. PANTOPRAZOLE [Suspect]
     Active Substance: PANTOPRAZOLE
     Dosage: 2 MG, UNK, (ORAL PROVOCATION TEST: 2 MG)
     Route: 048
  7. PANTOPRAZOLE [Suspect]
     Active Substance: PANTOPRAZOLE
     Dosage: 5 MG, UNK, (ORAL PROVOCATION TEST: 5 MG)
     Route: 048
  8. GRIPPOSTAD C [Concomitant]
     Active Substance: ACETAMINOPHEN\ASCORBIC ACID\CAFFEINE\CHLORPHENIRAMINE MALEATE
     Indication: NASOPHARYNGITIS
     Dosage: UNK
     Dates: start: 201501

REACTIONS (10)
  - Cold sweat [Recovered/Resolved]
  - Dyspnoea [Unknown]
  - Pruritus generalised [Unknown]
  - Rash [Recovered/Resolved]
  - Pruritus [Unknown]
  - Type I hypersensitivity [Unknown]
  - Headache [Recovered/Resolved]
  - Skin lesion [Unknown]
  - Cardiovascular disorder [Unknown]
  - Nausea [Recovered/Resolved]

NARRATIVE: CASE EVENT DATE: 201501
